FAERS Safety Report 5005839-X (Version None)
Quarter: 2006Q2

REPORT INFORMATION
  Report Type: 
  Country: None (occurrence: None)
  Receive Date: 20060515
  Receipt Date: 20060313
  Transmission Date: 20061013
  Serious: Yes (Death)
  Sender: FDA-Public Use
  Company Number: 2006S1000685

PATIENT
  Age: 58 Year
  Sex: Male
  Weight: 53.5244 kg

DRUGS (6)
  1. FENTANYL TRANSDERMAL SYSTEM [Suspect]
     Indication: CANCER PAIN
     Dosage: 75 UG/HR; Q3D; TRANS
     Dates: start: 20051001
  2. FENTANYL TRANSDERMAL SYSTEM [Suspect]
     Indication: SURGERY
     Dosage: 75 UG/HR; Q3D; TRANS
     Dates: start: 20051001
  3. FENTANYL TRANSDERMAL SYSTEM [Suspect]
     Indication: CANCER PAIN
     Dosage: 100 UG/HR; Q3D; TRANS
  4. FENTANYL TRANSDERMAL SYSTEM [Suspect]
     Indication: SURGERY
     Dosage: 100 UG/HR; Q3D; TRANS
  5. LORAZEPAM [Concomitant]
  6. PARACETAMOL [Concomitant]

REACTIONS (1)
  - INADEQUATE ANALGESIA [None]
